FAERS Safety Report 6140137-2 (Version None)
Quarter: 2009Q2

REPORT INFORMATION
  Report Type: 
  Country: None (occurrence: None)
  Receive Date: 20090401
  Receipt Date: 20090326
  Transmission Date: 20091009
  Serious: Yes (Death, Congenital Anomaly)
  Sender: FDA-Public Use
  Company Number: GB-BRISTOL-MYERS SQUIBB COMPANY-14545727

PATIENT

DRUGS (2)
  1. ABILIFY [Suspect]
     Indication: BIPOLAR DISORDER
     Route: 064
  2. SERTRALINE HCL [Suspect]
     Route: 064

REACTIONS (2)
  - FOETAL CHROMOSOME ABNORMALITY [None]
  - FOETAL MALFORMATION [None]
